FAERS Safety Report 7814218-9 (Version None)
Quarter: 2011Q4

REPORT INFORMATION
  Report Type: 
  Country: None (occurrence: None)
  Receive Date: 20111014
  Receipt Date: 20111004
  Transmission Date: 20120403
  Serious: Yes (Other)
  Sender: FDA-Public Use
  Company Number: ZA-BRISTOL-MYERS SQUIBB COMPANY-16148207

PATIENT
  Age: 49 Year
  Sex: Female

DRUGS (3)
  1. ZIDOVUDINE [Concomitant]
  2. EFAVIRENZ [Suspect]
     Indication: HIV INFECTION
     Route: 048
  3. DIDANOSINE [Concomitant]

REACTIONS (2)
  - HEPATIC CIRRHOSIS [None]
  - ASCITES [None]
